FAERS Safety Report 6470123-4 (Version None)
Quarter: 2009Q4

REPORT INFORMATION
  Report Type: 
  Country: None (occurrence: None)
  Receive Date: 20091203
  Receipt Date: 20091124
  Transmission Date: 20100525
  Serious: Yes (Hospitalization, Other)
  Sender: FDA-Public Use
  Company Number: CA-JNJFOC-20091107289

PATIENT
  Sex: Female
  Weight: 60 kg

DRUGS (9)
  1. REMICADE [Suspect]
     Indication: RHEUMATOID ARTHRITIS
     Route: 042
     Dates: start: 20040101
  2. NICOTINE [Concomitant]
  3. FRAGMIN [Concomitant]
  4. ZANTAC [Concomitant]
  5. HYDROXYCHLOROQUINE SULFATE [Concomitant]
  6. OMEPRAZOLE [Concomitant]
  7. PAXIL [Concomitant]
  8. METHOTREXATE [Concomitant]
  9. LORAZEPAM [Concomitant]

REACTIONS (2)
  - METASTASES TO CENTRAL NERVOUS SYSTEM [None]
  - METASTASES TO LYMPH NODES [None]
